FAERS Safety Report 4893728-0 (Version None)
Quarter: 2006Q1

REPORT INFORMATION
  Report Type: 
  Country: None (occurrence: None)
  Receive Date: 20060127
  Receipt Date: 20060116
  Transmission Date: 20060701
  Serious: Yes (Other)
  Sender: FDA-Public Use
  Company Number: FR-GLAXOSMITHKLINE-B0407524A

PATIENT
  Age: 16 Year
  Sex: Male

DRUGS (1)
  1. LAMICTAL [Suspect]
     Dosage: 100MG PER DAY
     Route: 048

REACTIONS (8)
  - CHILLS [None]
  - FATIGUE [None]
  - LYMPHOCYTE COUNT DECREASED [None]
  - MYALGIA [None]
  - PHARYNGEAL ERYTHEMA [None]
  - PLATELET COUNT DECREASED [None]
  - PYREXIA [None]
  - TRANSAMINASES INCREASED [None]
